FAERS Safety Report 9914218 (Version 2)
Quarter: 2014Q1

REPORT INFORMATION
  Report Type: Spontaneous
  Country: US (occurrence: US)
  Receive Date: 20140220
  Receipt Date: 20140225
  Transmission Date: 20141002
  Serious: Yes (Disabling)
  Sender: FDA-Public Use
  Company Number: US-009507513-1402USA009429

PATIENT
  Age: 49 Year
  Sex: Female

DRUGS (7)
  1. EMEND [Suspect]
     Indication: PROPHYLAXIS OF NAUSEA AND VOMITING
     Dosage: UNK
     Route: 042
     Dates: start: 20140104
  2. ALOXI [Concomitant]
  3. LAMICTAL [Concomitant]
  4. PHENOBARBITAL [Concomitant]
  5. DILANTIN [Concomitant]
  6. FOLIC ACID [Concomitant]
  7. CORTICOSTEROIDS (UNSPECIFIED) [Concomitant]

REACTIONS (8)
  - Local swelling [Recovering/Resolving]
  - Pain in extremity [Recovering/Resolving]
  - Lethargy [Recovering/Resolving]
  - Erythema [Recovering/Resolving]
  - Vomiting [Recovering/Resolving]
  - Pruritus [Recovering/Resolving]
  - Transfusion [Unknown]
  - Upper respiratory tract infection [Recovering/Resolving]
